FAERS Safety Report 4762461-8 (Version None)
Quarter: 2005Q3

REPORT INFORMATION
  Report Type: 
  Country: None (occurrence: None)
  Receive Date: 20050907
  Receipt Date: 20050826
  Transmission Date: 20060218
  Serious: Yes (Other)
  Sender: FDA-Public Use
  Company Number: PHNU2005DE02978

PATIENT
  Age: 11 Year
  Sex: Female
  Weight: 55 kg

DRUGS (1)
  1. EMSELEX EXTENDED RELEASE [Suspect]
     Indication: HYPERTONIC BLADDER
     Dosage: 22.5 MG, QD
     Route: 048
     Dates: start: 20050808, end: 20050822

REACTIONS (8)
  - DIZZINESS [None]
  - FATIGUE [None]
  - HEADACHE [None]
  - HYPERTENSION [None]
  - NASOPHARYNGITIS [None]
  - NAUSEA [None]
  - TACHYCARDIA [None]
  - VOMITING [None]
